FAERS Safety Report 9978558 (Version 1)
Quarter: 2014Q1

REPORT INFORMATION
  Report Type: Report from Study
  Country: US (occurrence: US)
  Receive Date: 20140306
  Receipt Date: 20140306
  Transmission Date: 20141002
  Serious: No
  Sender: FDA-Public Use
  Company Number: US-ABBVIE-13P-163-1171706-00

PATIENT
  Age: 61 Year
  Sex: Female
  Weight: 70.82 kg

DRUGS (5)
  1. HUMIRA [Suspect]
     Indication: PSORIATIC ARTHROPATHY
     Route: 058
     Dates: start: 20131114
  2. VITAMIN B-12 [Concomitant]
     Indication: VITAMIN SUPPLEMENTATION
  3. MULTIVITAMINS [Concomitant]
     Indication: VITAMIN SUPPLEMENTATION
  4. CALCIUM [Concomitant]
     Indication: MINERAL SUPPLEMENTATION
  5. VITAMIN D3 [Concomitant]
     Indication: VITAMIN SUPPLEMENTATION

REACTIONS (1)
  - Injection site pain [Unknown]
